FAERS Safety Report 14417412 (Version 1)
Quarter: 2018Q1

REPORT INFORMATION
  Report Type: Spontaneous
  Country: US (occurrence: US)
  Receive Date: 20180122
  Receipt Date: 20180122
  Transmission Date: 20180509
  Serious: No
  Sender: FDA-Public Use
  Company Number: US-009507513-1801USA007135

PATIENT
  Age: 41 Year
  Sex: Male

DRUGS (5)
  1. CETIRIZINE HYDROCHLORIDE. [Concomitant]
     Active Substance: CETIRIZINE HYDROCHLORIDE
  2. PREGNYL [Suspect]
     Active Substance: CHORIOGONADOTROPIN ALFA
     Indication: TESTICULAR FAILURE
     Dosage: 250 UNITS, TIW
     Route: 058
     Dates: start: 20170223
  3. SCHEINPHARM TESTONE-CYP [Concomitant]
  4. DILTIAZEM. [Concomitant]
     Active Substance: DILTIAZEM
  5. CARTIZ [Concomitant]

REACTIONS (2)
  - Testicular pain [Unknown]
  - Drug effect decreased [Unknown]

NARRATIVE: CASE EVENT DATE: 201801
